FAERS Safety Report 25340182 (Version 1)
Quarter: 2025Q2

REPORT INFORMATION
  Report Type: Spontaneous
  Country: GB (occurrence: GB)
  Receive Date: 20250521
  Receipt Date: 20250521
  Transmission Date: 20250717
  Serious: Yes (Other)
  Sender: HETERO
  Company Number: None

PATIENT
  Age: 50 Year
  Sex: Female
  Weight: 80 kg

DRUGS (1)
  1. DULOXETINE [Suspect]
     Active Substance: DULOXETINE
     Indication: Pain
     Route: 065
     Dates: start: 20250321, end: 20250324

REACTIONS (2)
  - Wheezing [Recovered/Resolved]
  - Dizziness [Recovered/Resolved]
